FAERS Safety Report 4848836-7 (Version None)
Quarter: 2005Q4

REPORT INFORMATION
  Report Type: 
  Country: None (occurrence: None)
  Receive Date: 20051115
  Receipt Date: 20051014
  Transmission Date: 20060501
  Serious: Yes (Hospitalization)
  Sender: FDA-Public Use
  Company Number: 353145

PATIENT
  Age: 53 Year
  Sex: Male

DRUGS (2)
  1. PEGASYS [Suspect]
     Indication: HEPATITIS C VIRUS
     Dosage: OTHER
     Route: 050
     Dates: start: 20040815
  2. COPEGUS [Suspect]
     Indication: HEPATITIS C VIRUS
     Dosage: ORAL
     Route: 048
     Dates: start: 20040815

REACTIONS (10)
  - AMNESIA [None]
  - BACK PAIN [None]
  - CELLULITIS [None]
  - FACIAL PAIN [None]
  - FATIGUE [None]
  - NASAL DISCOMFORT [None]
  - PYREXIA [None]
  - RHINORRHOEA [None]
  - SWELLING [None]
  - URTICARIA [None]
